FAERS Safety Report 8963206 (Version 2)
Quarter: 2014Q2

REPORT INFORMATION
  Report Type: Report from Study
  Country: SE (occurrence: SE)
  Receive Date: 20121214
  Receipt Date: 20131018
  Transmission Date: 20141212
  Serious: Yes (Hospitalization)
  Sender: FDA-Public Use
  Company Number: SE-PFIZER INC-2012312824

PATIENT
  Age: 52 Year
  Sex: Male

DRUGS (14)
  1. SIROLIMUS [Suspect]
     Indication: PROPHYLAXIS AGAINST TRANSPLANT REJECTION
     Dosage: 2 MG, DAILY
     Route: 048
     Dates: start: 20030619
  2. SIROLIMUS [Suspect]
     Dosage: 1 MG, DAILY
     Route: 048
     Dates: start: 20030804
  3. PREDNISOLONE [Suspect]
     Indication: PROPHYLAXIS AGAINST TRANSPLANT REJECTION
     Dosage: 2.5 MG, 1X/DAY
     Route: 048
     Dates: start: 20030619
  4. METHYLPREDNISOLONE ACETATE [Suspect]
     Indication: PROPHYLAXIS AGAINST TRANSPLANT REJECTION
     Dosage: 500 MG, 1X/DAY
     Route: 042
     Dates: start: 20030618
  5. METHYLPREDNISOLONE ACETATE [Suspect]
     Dosage: 250 MG, 1X/DAY
     Route: 042
     Dates: start: 20030726, end: 20030728
  6. METHYLPREDNISOLONE ACETATE [Suspect]
     Dosage: 250 MG, 1X/DAY
     Route: 042
     Dates: start: 20030805, end: 20030809
  7. MYCOPHENOLATE MOFETIL [Suspect]
     Indication: PROPHYLAXIS AGAINST TRANSPLANT REJECTION
     Dosage: 1000 MG, 2X/DAY
     Route: 048
     Dates: start: 20030618
  8. MYCOPHENOLATE MOFETIL [Suspect]
     Dosage: 500 MG, 2X/DAY
     Route: 048
     Dates: start: 20030806
  9. DACLIZUMAB [Suspect]
     Indication: PROPHYLAXIS AGAINST TRANSPLANT REJECTION
     Dosage: 85 MG
     Route: 042
     Dates: start: 20030618
  10. DACLIZUMAB [Suspect]
     Dosage: 85 MG, 1 IN 2 WEEKS
     Route: 042
     Dates: start: 20030704
  11. TACROLIMUS [Suspect]
     Indication: PROPHYLAXIS AGAINST TRANSPLANT REJECTION
  12. HYDROCORTISONE [Suspect]
     Indication: PROPHYLAXIS AGAINST TRANSPLANT REJECTION
     Dosage: 100 MG, 1X/DAY
     Route: 042
     Dates: start: 20030731, end: 20030803
  13. GANCICLOVIR [Concomitant]
     Dosage: UNK
     Route: 048
     Dates: start: 20030624
  14. PANTOPRAZOLE [Concomitant]
     Dosage: UNK
     Route: 048
     Dates: start: 20030622

REACTIONS (2)
  - Nasopharyngitis [Recovered/Resolved]
  - Deep vein thrombosis [Not Recovered/Not Resolved]
